FAERS Safety Report 6335752-7 (Version None)
Quarter: 2009Q3

REPORT INFORMATION
  Report Type: 
  Country: None (occurrence: None)
  Receive Date: 20090828
  Receipt Date: 20090818
  Transmission Date: 20100115
  Serious: Yes (Hospitalization)
  Sender: FDA-Public Use
  Company Number: 8050642

PATIENT
  Sex: Male

DRUGS (7)
  1. KEPPRA [Suspect]
     Indication: CONVULSION
     Dosage: 500 MG 2/D PO
     Route: 048
  2. ZOFRAN [Concomitant]
  3. PROTONIX [Concomitant]
  4. DEXAMETHAZONE-PIX [Concomitant]
  5. TYLENOL (CAPLET) [Concomitant]
  6. ATIVAN [Concomitant]
  7. MORPHINE [Concomitant]

REACTIONS (1)
  - MALIGNANT MELANOMA [None]
